FAERS Safety Report 6121851 (Version 2)
Quarter: 2013Q1

REPORT INFORMATION
  Report Type: Spontaneous
  Country: SE (occurrence: SE)
  Receive Date: 20060906
  Receipt Date: 20130325
  Transmission Date: 20140127
  Serious: Yes (Congenital Anomaly, Other)
  Sender: FDA-Public Use
  Company Number: SE-RB-3828-2006

PATIENT
  Sex: Male

DRUGS (1)
  1. SUBUTEX [Suspect]
     Indication: DRUG DEPENDENCE
     Route: 064
     Dates: start: 2005, end: 2005

REACTIONS (2)
  - Foetal exposure during pregnancy [Recovered/Resolved]
  - Hernia congenital [Recovered/Resolved]
